FAERS Safety Report 21423965 (Version 1)
Quarter: 2022Q4

REPORT INFORMATION
  Report Type: Spontaneous
  Country: US (occurrence: None)
  Receive Date: 20221006
  Receipt Date: 20221006
  Transmission Date: 20230112
  Serious: No
  Sender: FDA-Public Use
  Company Number: None

PATIENT
  Age: 48 Year
  Sex: Female

DRUGS (1)
  1. HUMIRA [Suspect]
     Active Substance: ADALIMUMAB
     Indication: Uveitis
     Dosage: INJECT  80MG (2 PENS) SUBCUTANEOUSLY ON  DAY 1, 40MG (1 PEN) DAY 8 THEN 40MG EVERY OTHER  WEEK AS
     Route: 058
     Dates: start: 202105

REACTIONS (1)
  - COVID-19 [None]
